FAERS Safety Report 6903181-0 (Version None)
Quarter: 2010Q3

REPORT INFORMATION
  Report Type: 
  Country: None (occurrence: None)
  Receive Date: 20100803
  Receipt Date: 20080908
  Transmission Date: 20110219
  Serious: Yes (Other)
  Sender: FDA-Public Use
  Company Number: US-PFIZER INC-2008062207

PATIENT
  Sex: Female
  Weight: 101.2 kg

DRUGS (17)
  1. LYRICA [Suspect]
     Indication: FIBROMYALGIA
     Route: 048
     Dates: start: 20071101
  2. TRAMADOL HYDROCHLORIDE [Concomitant]
  3. PLAQUENIL [Concomitant]
  4. SALAGEN [Concomitant]
  5. KLONOPIN [Concomitant]
  6. CELEBREX [Concomitant]
  7. FLEXERIL [Concomitant]
  8. NEXIUM [Concomitant]
  9. CREON [Concomitant]
  10. PAXIL [Concomitant]
  11. DRUG, UNSPECIFIED [Concomitant]
  12. COLESTID [Concomitant]
  13. TRICOR [Concomitant]
  14. DIOVAN HCT [Concomitant]
  15. SYNTHROID [Concomitant]
  16. MONTELUKAST [Concomitant]
  17. VITAMIN TAB [Concomitant]

REACTIONS (8)
  - CHEST DISCOMFORT [None]
  - DRUG INEFFECTIVE [None]
  - FIBROMYALGIA [None]
  - GLUCOSE TOLERANCE IMPAIRED [None]
  - LOCAL SWELLING [None]
  - MUSCULOSKELETAL STIFFNESS [None]
  - OEDEMA PERIPHERAL [None]
  - WEIGHT INCREASED [None]
